FAERS Safety Report 15742363 (Version 1)
Quarter: 2018Q4

REPORT INFORMATION
  Report Type: Spontaneous
  Country: EG (occurrence: EG)
  Receive Date: 20181219
  Receipt Date: 20181219
  Transmission Date: 20190205
  Serious: Yes (Life-Threatening, Hospitalization)
  Sender: FDA-Public Use
  Company Number: PHHY2018EG188644

PATIENT
  Age: 41 Month
  Sex: Male

DRUGS (1)
  1. CEFTRIAXONE. [Suspect]
     Active Substance: CEFTRIAXONE
     Indication: TYMPANIC MEMBRANE PERFORATION
     Dosage: UNK, QD
     Route: 065

REACTIONS (8)
  - Type I hypersensitivity [Recovered/Resolved]
  - Oedema [Recovered/Resolved]
  - Asthma [Recovered/Resolved]
  - Asphyxia [Recovered/Resolved]
  - Respiratory arrest [Recovered/Resolved]
  - Muscle spasms [Recovered/Resolved]
  - Wheezing [Recovered/Resolved]
  - Swelling [Recovered/Resolved]

NARRATIVE: CASE EVENT DATE: 201811
